FAERS Safety Report 23089838 (Version 1)
Quarter: 2023Q4

REPORT INFORMATION
  Report Type: Spontaneous
  Country: US (occurrence: US)
  Receive Date: 20231020
  Receipt Date: 20231020
  Transmission Date: 20240110
  Serious: Yes (Death, Other)
  Sender: FDA-Public Use
  Company Number: US-PURDUE-USA-2023-0305420

PATIENT
  Age: 25 Year
  Sex: Female

DRUGS (2)
  1. DEXTROAMPHET SACCHARAT, AMPHET ASPARTATE, DEXTROAMPHET SULFATE AND AMP [Suspect]
     Active Substance: AMPHETAMINE ASPARTATE\AMPHETAMINE ASPARTATE MONOHYDRATE\AMPHETAMINE SULFATE\DEXTROAMPHETAMINE SACCHA
     Indication: Product used for unknown indication
     Dosage: UNK
     Route: 065
  2. COCAINE [Suspect]
     Active Substance: COCAINE
     Indication: Product used for unknown indication
     Dosage: UNKNOWN
     Route: 065

REACTIONS (14)
  - Toxicity to various agents [Fatal]
  - Acute kidney injury [Unknown]
  - Acute lung injury [Unknown]
  - Cardiac arrest [Unknown]
  - Depressed level of consciousness [Unknown]
  - Coma [Unknown]
  - Hepatotoxicity [Unknown]
  - Myocardial ischaemia [Unknown]
  - Myocardial injury [Unknown]
  - Rhabdomyolysis [Unknown]
  - Hypotension [Unknown]
  - Metabolic acidosis [Unknown]
  - Bradypnoea [Unknown]
  - Anion gap [Unknown]
